FAERS Safety Report 6979499-2 (Version None)
Quarter: 2010Q3

REPORT INFORMATION
  Report Type: 
  Country: None (occurrence: None)
  Receive Date: 20100913
  Receipt Date: 20100803
  Transmission Date: 20110219
  Serious: Yes (Other)
  Sender: FDA-Public Use
  Company Number: US-BAXTER-2010BH005744

PATIENT
  Age: 50 Year
  Sex: Male
  Weight: 117 kg

DRUGS (7)
  1. HEPARIN SODIUM INJECTION [Suspect]
     Indication: LYME DISEASE
     Route: 058
     Dates: start: 20080128
  2. HEPARIN SODIUM INJECTION [Suspect]
     Indication: ANTICOAGULANT THERAPY
     Route: 058
     Dates: start: 20080128
  3. HEPARIN SODIUM INJECTION [Suspect]
     Route: 058
     Dates: start: 20080201
  4. HEPARIN SODIUM INJECTION [Suspect]
     Route: 058
     Dates: start: 20080201
  5. ADVAIR DISKUS 100/50 [Concomitant]
     Indication: PRODUCT USED FOR UNKNOWN INDICATION
     Route: 055
  6. ALBUTEROL SULFATE AND IPRATROPIUM BROMIDE [Concomitant]
     Indication: PRODUCT USED FOR UNKNOWN INDICATION
     Route: 055
  7. METFORMIN [Concomitant]
     Indication: PRODUCT USED FOR UNKNOWN INDICATION
     Route: 065

REACTIONS (14)
  - ABASIA [None]
  - ASTHENIA [None]
  - BLOOD TRIGLYCERIDES INCREASED [None]
  - DIZZINESS [None]
  - DYSPNOEA [None]
  - HYPERHIDROSIS [None]
  - HYPOAESTHESIA [None]
  - HYPOAESTHESIA FACIAL [None]
  - HYPOAESTHESIA ORAL [None]
  - LOSS OF CONSCIOUSNESS [None]
  - OEDEMA MOUTH [None]
  - PHARYNGEAL HYPOAESTHESIA [None]
  - SWOLLEN TONGUE [None]
  - THINKING ABNORMAL [None]
